FAERS Safety Report 8041771-5 (Version None)
Quarter: 2012Q1

REPORT INFORMATION
  Report Type: 
  Country: None (occurrence: None)
  Receive Date: 20120112
  Receipt Date: 20120111
  Transmission Date: 20120608
  Serious: Yes (Hospitalization)
  Sender: FDA-Public Use
  Company Number: US-ABBOTT-12P-163-0891612-00

PATIENT
  Sex: Male
  Weight: 109.87 kg

DRUGS (4)
  1. ANTIHYPERTENSIVES [Concomitant]
     Indication: HYPERTENSION
  2. HUMIRA [Suspect]
     Indication: PSORIATIC ARTHROPATHY
     Route: 058
     Dates: start: 20110401
  3. ANTIHYPERLIPIDEMIA [Concomitant]
     Indication: HYPERLIPIDAEMIA
  4. HUMIRA [Suspect]
     Route: 058
     Dates: start: 20111231

REACTIONS (1)
  - INTERVERTEBRAL DISC DEGENERATION [None]
